FAERS Safety Report 22226090 (Version 1)
Quarter: 2023Q2

REPORT INFORMATION
  Report Type: Spontaneous
  Country: IN (occurrence: IN)
  Receive Date: 20230419
  Receipt Date: 20230419
  Transmission Date: 20230722
  Serious: Yes (Other)
  Sender: FDA-Public Use
  Company Number: IN-drreddys-SPO/IND/23/0163711

PATIENT
  Age: 34 Year
  Sex: Male

DRUGS (4)
  1. LIDOCAINE [Suspect]
     Active Substance: LIDOCAINE
     Indication: Ventricular tachycardia
  2. AMIODARONE [Suspect]
     Active Substance: AMIODARONE
     Indication: Palpitations
     Route: 048
  3. AMIODARONE [Suspect]
     Active Substance: AMIODARONE
     Indication: Ventricular tachycardia
     Route: 042
  4. METOPROLOL [Concomitant]
     Active Substance: METOPROLOL
     Indication: Palpitations
     Route: 048

REACTIONS (2)
  - Bundle branch block left [Recovered/Resolved]
  - Product use in unapproved indication [Unknown]
